FAERS Safety Report 10163108 (Version 2)
Quarter: 2014Q2

REPORT INFORMATION
  Report Type: Report from Study
  Country: US (occurrence: US)
  Receive Date: 20140509
  Receipt Date: 20140522
  Transmission Date: 20141212
  Serious: Yes (Hospitalization)
  Sender: FDA-Public Use
  Company Number: PHEH2014US008806

PATIENT
  Age: 26 Year
  Sex: Male
  Weight: 72.5 kg

DRUGS (3)
  1. TOBI [Suspect]
     Indication: CYSTIC FIBROSIS
     Dosage: 300MG/5ML TWICE A DAY
     Route: 055
     Dates: start: 201308
  2. TOBI PODHALER [Suspect]
     Indication: CYSTIC FIBROSIS
     Dosage: 112 MG, BID (4 CAP BID, 28 DAY SHEDULED AFTER ONE MONTH ON /OFF)
     Route: 055
     Dates: start: 20130807
  3. TOBI PODHALER [Suspect]
     Indication: PSEUDOMONAS INFECTION

REACTIONS (3)
  - Cystic fibrosis [Not Recovered/Not Resolved]
  - Condition aggravated [Not Recovered/Not Resolved]
  - Lung disorder [Recovered/Resolved]
